FAERS Safety Report 18436755 (Version 1)
Quarter: 2020Q4

REPORT INFORMATION
  Report Type: Other
  Country: GB (occurrence: GB)
  Receive Date: 20201028
  Receipt Date: 20201028
  Transmission Date: 20210114
  Serious: Yes (Hospitalization, Other)
  Sender: FDA-Public Use
  Company Number: GB-ROCHE-2702077

PATIENT

DRUGS (4)
  1. NIVOLUMAB [Suspect]
     Active Substance: NIVOLUMAB
     Indication: NEOPLASM MALIGNANT
     Route: 065
  2. DOCETAXEL. [Suspect]
     Active Substance: DOCETAXEL
     Indication: NEOPLASM MALIGNANT
     Route: 065
  3. ATEZOLIZUMAB. [Suspect]
     Active Substance: ATEZOLIZUMAB
     Indication: NEOPLASM MALIGNANT
     Route: 065
  4. PEMBROLIZUMAB. [Suspect]
     Active Substance: PEMBROLIZUMAB
     Indication: NEOPLASM MALIGNANT
     Route: 065

REACTIONS (23)
  - Nausea [Unknown]
  - Vomiting [Unknown]
  - Inappropriate antidiuretic hormone secretion [Unknown]
  - Renal impairment [Unknown]
  - Mucosal inflammation [Unknown]
  - Dizziness [Unknown]
  - Cough [Unknown]
  - Conjunctival haemorrhage [Unknown]
  - Fatigue [Unknown]
  - Nail disorder [Unknown]
  - Pruritus [Unknown]
  - Diarrhoea [Unknown]
  - Dyspnoea [Unknown]
  - Pyrexia [Unknown]
  - Arthralgia [Unknown]
  - Chest pain [Unknown]
  - Visual impairment [Unknown]
  - Liver function test abnormal [Unknown]
  - Hypothyroidism [Unknown]
  - Blood glucose increased [Unknown]
  - Bone pain [Unknown]
  - Rash [Unknown]
  - Chest discomfort [Unknown]
